FAERS Safety Report 14919394 (Version 2)
Quarter: 2018Q2

REPORT INFORMATION
  Report Type: Spontaneous
  Country: US (occurrence: US)
  Receive Date: 20180521
  Receipt Date: 20180529
  Transmission Date: 20180711
  Serious: Yes (Hospitalization)
  Sender: FDA-Public Use
  Company Number: US-CELGENEUS-USA-20180506351

PATIENT
  Sex: Female

DRUGS (2)
  1. REVLIMID [Suspect]
     Active Substance: LENALIDOMIDE
     Indication: PLASMA CELL MYELOMA
     Dosage: 15 MILLIGRAM
     Route: 048
     Dates: start: 20180123
  2. REVLIMID [Suspect]
     Active Substance: LENALIDOMIDE
     Indication: PATHOLOGICAL FRACTURE

REACTIONS (2)
  - Urinary tract infection [Unknown]
  - Atrial fibrillation [Unknown]
